FAERS Safety Report 6488079-7 (Version None)
Quarter: 2009Q4

REPORT INFORMATION
  Report Type: 
  Country: None (occurrence: None)
  Receive Date: 20091123
  Receipt Date: 20091016
  Transmission Date: 20100525
  Serious: No
  Sender: FDA-Public Use
  Company Number: 8053368

PATIENT
  Age: 52 Year
  Sex: Female
  Weight: 70.4 kg

DRUGS (8)
  1. CIMZIA [Suspect]
     Indication: CROHN'S DISEASE
     Dosage: 400 MG SC
     Route: 058
     Dates: start: 20090216
  2. VITAMIN B-12 [Concomitant]
  3. VITAMIN D [Concomitant]
  4. VALSARTAN/HYDROCHLOORTHIAZIDE [Concomitant]
  5. ASPIRIN [Concomitant]
  6. AZATHIOPRINE [Interacting]
  7. METFORMIN HCL [Concomitant]
  8. FENOFIBRATE [Concomitant]

REACTIONS (1)
  - INFECTED BITES [None]
